FAERS Safety Report 13733088 (Version 4)
Quarter: 2018Q3

REPORT INFORMATION
  Report Type: Spontaneous
  Country: US (occurrence: US)
  Receive Date: 20170707
  Receipt Date: 20180706
  Transmission Date: 20181010
  Serious: No
  Sender: FDA-Public Use
  Company Number: US-GLAXOSMITHKLINE-US2017104890

PATIENT
  Sex: Male
  Weight: 76.19 kg

DRUGS (13)
  1. PEPCID [Concomitant]
     Active Substance: FAMOTIDINE
  2. ADVAIR HFA [Concomitant]
     Active Substance: FLUTICASONE PROPIONATE\SALMETEROL XINAFOATE
  3. CLARITIN TABLETS (LORATADINE) [Concomitant]
  4. PREDNISONE. [Concomitant]
     Active Substance: PREDNISONE
  5. NUCALA [Suspect]
     Active Substance: MEPOLIZUMAB
     Indication: ASTHMA
     Dosage: UNK UNK, CYC
     Route: 042
     Dates: start: 201701
  6. NUCALA [Suspect]
     Active Substance: MEPOLIZUMAB
     Dosage: UNK
  7. NUCALA [Suspect]
     Active Substance: MEPOLIZUMAB
     Dosage: UNK
  8. NUCALA [Suspect]
     Active Substance: MEPOLIZUMAB
     Dosage: UNK
  9. NUCALA [Suspect]
     Active Substance: MEPOLIZUMAB
     Dosage: UNK
  10. METFORMIN [Concomitant]
     Active Substance: METFORMIN HYDROCHLORIDE
  11. SINGULAIR [Concomitant]
     Active Substance: MONTELUKAST SODIUM
  12. FLONASE [Concomitant]
     Active Substance: FLUTICASONE PROPIONATE
  13. SPIRIVA [Concomitant]
     Active Substance: TIOTROPIUM BROMIDE MONOHYDRATE

REACTIONS (4)
  - Limb discomfort [Unknown]
  - Oral candidiasis [Not Recovered/Not Resolved]
  - Malaise [Unknown]
  - Fatigue [Not Recovered/Not Resolved]
